FAERS Safety Report 6204913-X (Version None)
Quarter: 2009Q2

REPORT INFORMATION
  Report Type: 
  Country: None (occurrence: None)
  Receive Date: 20090526
  Receipt Date: 20090511
  Transmission Date: 20091009
  Serious: Yes (Hospitalization)
  Sender: FDA-Public Use
  Company Number: 1000006360

PATIENT
  Age: 65 Year
  Sex: Female
  Weight: 90 kg

DRUGS (7)
  1. ESCITALOPRAM [Suspect]
     Dosage: 20 MG (20 MG, 1 IN 1 D), ORAL
     Route: 048
     Dates: start: 20070201, end: 20090101
  2. ESCITALOPRAM [Suspect]
     Dosage: 10 MG, (10 MG, 1 IN 1 D), ORAL
     Route: 048
     Dates: start: 20090101
  3. EDRONAX (TABLETS) [Suspect]
     Dosage: 8 MG (8 MG, 1 IN 1 D), ORAL
     Route: 048
     Dates: start: 20090217
  4. TEMESTA (TABLETS) [Suspect]
     Dosage: 1 MG (1 MG, 1 IN 1 D), ORAL
     Route: 048
     Dates: start: 20090320
  5. TEGRETOL [Concomitant]
  6. FOSICOMB (TABLETS) [Concomitant]
  7. NORVASC [Concomitant]

REACTIONS (1)
  - URINARY INCONTINENCE [None]
